FAERS Safety Report 21147638 (Version 1)
Quarter: 2022Q3

REPORT INFORMATION
  Report Type: Report from Study
  Country: US (occurrence: None)
  Receive Date: 20220729
  Receipt Date: 20220729
  Transmission Date: 20221027
  Serious: Yes (Other)
  Sender: FDA-Public Use
  Company Number: US-Merck Healthcare KGaA-9328433

PATIENT
  Age: 59 Year
  Sex: Female

DRUGS (2)
  1. MAVENCLAD [Suspect]
     Active Substance: CLADRIBINE
     Indication: Multiple sclerosis
     Dosage: YEAR ONE MONTH ONE THERAPY
     Route: 048
     Dates: start: 20220710
  2. MAVENCLAD [Suspect]
     Active Substance: CLADRIBINE
     Dosage: YEAR ONE MONTH TWO THERAPY
     Route: 048
     Dates: start: 20220601, end: 20220605

REACTIONS (11)
  - Electrocardiogram T wave inversion [Unknown]
  - Chest discomfort [Unknown]
  - Nasopharyngitis [Recovered/Resolved]
  - Fatigue [Unknown]
  - Sleep disorder [Unknown]
  - Dizziness [Unknown]
  - Feeling abnormal [Unknown]
  - Thinking abnormal [Unknown]
  - Visual impairment [Unknown]
  - Heart rate increased [Unknown]
  - Irritability [Unknown]

NARRATIVE: CASE EVENT DATE: 20220603
